FAERS Safety Report 25713673 (Version 1)
Quarter: 2025Q3

REPORT INFORMATION
  Report Type: Spontaneous
  Country: US (occurrence: US)
  Receive Date: 20250822
  Receipt Date: 20250822
  Transmission Date: 20251020
  Serious: No
  Sender: CIPLA
  Company Number: US-CIPLA LTD.-2024US11891

PATIENT

DRUGS (4)
  1. ICATIBANT [Suspect]
     Active Substance: ICATIBANT ACETATE
     Indication: Hereditary angioedema
     Route: 065
     Dates: start: 2013
  2. ICATIBANT [Suspect]
     Active Substance: ICATIBANT ACETATE
     Route: 065
     Dates: start: 20241010
  3. ICATIBANT [Suspect]
     Active Substance: ICATIBANT ACETATE
     Route: 065
     Dates: start: 20241015
  4. FIRAZYR [Concomitant]
     Active Substance: ICATIBANT ACETATE
     Indication: Hereditary angioedema
     Route: 065
     Dates: start: 2013

REACTIONS (3)
  - Product use complaint [Unknown]
  - Product packaging difficult to open [Unknown]
  - Product label issue [Unknown]

NARRATIVE: CASE EVENT DATE: 20241001
